FAERS Safety Report 25614596 (Version 1)
Quarter: 2025Q3

REPORT INFORMATION
  Report Type: Spontaneous
  Country: US (occurrence: US)
  Receive Date: 20250729
  Receipt Date: 20250729
  Transmission Date: 20251021
  Serious: Yes (Other)
  Sender: CHEPLAPHARM
  Company Number: US-CHEPLA-2025008208

PATIENT
  Age: 52 Year
  Sex: Female
  Weight: 78.459 kg

DRUGS (6)
  1. HYDROXYUREA [Suspect]
     Active Substance: HYDROXYUREA
     Indication: Chronic myeloid leukaemia
     Dates: start: 20220908, end: 20220918
  2. BOSUTINIB [Suspect]
     Active Substance: BOSUTINIB
     Indication: Chronic myeloid leukaemia
     Dosage: DAILY DOSE: 400 MILLIGRAM
     Dates: start: 20220908, end: 20220918
  3. BOSUTINIB [Suspect]
     Active Substance: BOSUTINIB
     Indication: Chronic myeloid leukaemia
     Dates: end: 20221111
  4. IMATINIB MESYLATE [Suspect]
     Active Substance: IMATINIB MESYLATE
     Dates: start: 20221111
  5. TYLENOL [Concomitant]
     Active Substance: ACETAMINOPHEN
  6. INFLUENZA VIRUS VACCINE [Concomitant]
     Active Substance: INFLUENZA VIRUS VACCINE
     Indication: Immunisation

REACTIONS (13)
  - Hepatic enzyme increased [Recovered/Resolved]
  - Hepatic function abnormal [Unknown]
  - Nausea [Unknown]
  - Diarrhoea [Unknown]
  - Vomiting [Unknown]
  - Pyrexia [Unknown]
  - Hyperkalaemia [Recovered/Resolved]
  - Von Willebrand^s disease [Unknown]
  - Thrombocytosis [Recovered/Resolved]
  - Iron deficiency [Recovering/Resolving]
  - Peripheral swelling [Unknown]
  - Hypocalcaemia [Unknown]
  - Hypoaesthesia [Unknown]

NARRATIVE: CASE EVENT DATE: 20220901
